FAERS Safety Report 19553869 (Version 3)
Quarter: 2021Q3

REPORT INFORMATION
  Report Type: Spontaneous
  Country: PT (occurrence: PT)
  Receive Date: 20210715
  Receipt Date: 20210804
  Transmission Date: 20211014
  Serious: Yes (Hospitalization, Other)
  Sender: FDA-Public Use
  Company Number: PT-VIIV HEALTHCARE LIMITED-PT2021EME151274

PATIENT
  Age: 61 Year
  Sex: Male

DRUGS (1)
  1. DOLUTEGRAVIR + LAMIVUDINE [Suspect]
     Active Substance: DOLUTEGRAVIR SODIUM\LAMIVUDINE
     Indication: HIV INFECTION
     Dosage: 150 MG
     Dates: start: 2018

REACTIONS (4)
  - Acute myeloid leukaemia [Unknown]
  - Leukocytosis [Unknown]
  - Febrile neutropenia [Unknown]
  - Septic shock [Unknown]
